FAERS Safety Report 9562167 (Version 5)
Quarter: 2013Q4

REPORT INFORMATION
  Report Type: Report from Study
  Country: US (occurrence: US)
  Receive Date: 20130927
  Receipt Date: 20131119
  Transmission Date: 20140711
  Serious: Yes (Life-Threatening, Hospitalization)
  Sender: FDA-Public Use
  Company Number: US-JNJFOC-20130914844

PATIENT
  Age: 19 Year
  Sex: Female
  Weight: 59.7 kg

DRUGS (36)
  1. REMICADE [Suspect]
     Indication: COLITIS ULCERATIVE
     Route: 042
     Dates: start: 20090601, end: 20120921
  2. LOVENOX [Suspect]
     Indication: PRODUCT USED FOR UNKNOWN INDICATION
     Route: 065
  3. MULTIPLE VITAMIN [Concomitant]
     Route: 065
  4. PRILOSEC [Concomitant]
     Route: 065
  5. ZOFRAN [Concomitant]
     Route: 065
  6. METHADONE [Concomitant]
     Route: 065
  7. DILAUDID [Concomitant]
     Route: 065
  8. PHENERGAN [Concomitant]
     Route: 065
  9. OXYCODONE [Concomitant]
     Route: 065
  10. MAGNESIUM SULPHATE [Concomitant]
     Route: 065
  11. IMODIUM [Concomitant]
     Route: 065
  12. MIDOL IB [Concomitant]
     Route: 065
  13. VISINE AC [Concomitant]
     Route: 065
  14. HYDROCORTISONE [Concomitant]
     Route: 065
  15. TYLENOL [Concomitant]
     Route: 065
  16. HEPARIN [Concomitant]
     Route: 065
  17. LIDOCAINE [Concomitant]
     Route: 065
  18. REGLAN [Concomitant]
     Route: 065
  19. SODIUM CHLORIDE [Concomitant]
     Route: 065
  20. RINGERS LACTATE [Concomitant]
     Route: 065
  21. VERSED [Concomitant]
     Route: 065
  22. PROPOFOL [Concomitant]
     Route: 065
  23. EPHEDRINE [Concomitant]
     Route: 065
  24. PHENYLEPHRINE [Concomitant]
     Route: 065
  25. EPINEPHRINE [Concomitant]
     Route: 065
  26. ROBINUL [Concomitant]
     Route: 065
  27. VECURONIUM [Concomitant]
     Route: 065
  28. DECADRON [Concomitant]
     Route: 065
  29. NYSTATIN [Concomitant]
     Route: 065
  30. PROTONIX [Concomitant]
     Route: 065
  31. MAGIC MOUTHWASH [Concomitant]
     Route: 065
  32. FENTANYL [Concomitant]
     Route: 065
  33. NORMAL SALINE [Concomitant]
     Route: 065
  34. POTASSIUM CHLORIDE [Concomitant]
     Dosage: 20 MEQ/L
     Route: 065
  35. BUPIVACAINE [Concomitant]
     Route: 065
  36. HYDROMORPHONE [Concomitant]
     Route: 065

REACTIONS (5)
  - Gastrointestinal haemorrhage [Recovered/Resolved]
  - Dehydration [Recovered/Resolved]
  - Hyponatraemia [Recovered/Resolved]
  - Acute prerenal failure [Recovered/Resolved]
  - Hyperkalaemia [Recovered/Resolved]
